FAERS Safety Report 8541226-5 (Version None)
Quarter: 2012Q3

REPORT INFORMATION
  Report Type: 
  Country: None (occurrence: None)
  Receive Date: 20120726
  Receipt Date: 20120721
  Transmission Date: 20120928
  Serious: Yes (Other)
  Sender: FDA-Public Use
  Company Number: US-PFIZER INC-2012176885

PATIENT
  Sex: Male
  Weight: 77.098 kg

DRUGS (2)
  1. LATANOPROST [Suspect]
     Indication: GLAUCOMA
     Dosage: ONE DROP IN BOTH EYES, 1X/DAY
     Route: 047
     Dates: start: 20120501, end: 20120606
  2. TIMOLOL [Concomitant]
     Dosage: UNK

REACTIONS (3)
  - DRUG INEFFECTIVE [None]
  - EYE DISORDER [None]
  - INTRAOCULAR PRESSURE INCREASED [None]
